FAERS Safety Report 8927832 (Version 1)
Quarter: 2012Q4

REPORT INFORMATION
  Report Type: Report from Study
  Country: JP (occurrence: JP)
  Receive Date: 20121127
  Receipt Date: 20121127
  Transmission Date: 20130627
  Serious: Yes (Other)
  Sender: FDA-Public Use
  Company Number: JP-VERTEX PHARMACEUTICAL INC.-AE-2012-006169

PATIENT
  Age: 60 Year
  Sex: Male

DRUGS (12)
  1. VX-950 (TELAPREVIR) [Suspect]
     Indication: CHRONIC HEPATITIS C
     Dosage: 2250 mg, qd
     Route: 048
     Dates: start: 20120313, end: 20120605
  2. RIBAVIRIN [Suspect]
     Indication: CHRONIC HEPATITIS C
     Dosage: 800 mg, qd
     Route: 048
     Dates: start: 20120313, end: 20120423
  3. RIBAVIRIN [Suspect]
     Dosage: 600 mg, qd
     Route: 048
     Dates: start: 20120424
  4. PEGINTERFERON ALFA-2B [Suspect]
     Indication: CHRONIC HEPATITIS C
     Dosage: 1.5 ?g/kg,qw
     Route: 058
     Dates: start: 20120313
  5. URSO                               /00465701/ [Concomitant]
     Route: 048
     Dates: end: 20120412
  6. HERBESSER R [Concomitant]
     Dosage: 200 mg, qd
     Route: 048
     Dates: start: 20060209
  7. NITOROL R [Concomitant]
     Dosage: 40 mg, qd
     Route: 048
     Dates: start: 20060209
  8. CONIEL [Concomitant]
     Dosage: 8 mg, qd
     Route: 048
     Dates: start: 20060209
  9. CINAL [Concomitant]
     Dosage: 3 DF, qd
     Route: 048
     Dates: start: 20120313
  10. JUVELA N [Concomitant]
     Dosage: 600 mg, qd
     Route: 048
     Dates: start: 20120313
  11. PROMAC                             /00024401/ [Concomitant]
     Dosage: 150 mg, qd
     Route: 048
     Dates: start: 20120313
  12. NAUZELIN [Concomitant]
     Dosage: 30 mg, qd
     Route: 048
     Dates: start: 20120313, end: 20120326

REACTIONS (1)
  - Retinopathy [Recovered/Resolved]
